FAERS Safety Report 8826310 (Version 1)
Quarter: 2012Q4

REPORT INFORMATION
  Report Type: 
  Country: US (occurrence: US)
  Receive Date: 20121008
  Receipt Date: 20121008
  Transmission Date: 20130627
  Serious: No
  Sender: FDA-Public Use
  Company Number: US-GLAXOSMITHKLINE-A0992028A

PATIENT
  Age: 44 Year
  Sex: Male

DRUGS (1)
  1. POTIGA [Suspect]
     Indication: EPILEPSY
     Dosage: 50MG Three times per day
     Dates: start: 20120823, end: 20120825

REACTIONS (2)
  - Dysuria [Not Recovered/Not Resolved]
  - Urinary retention [Not Recovered/Not Resolved]
